FAERS Safety Report 6022357-0 (Version None)
Quarter: 2008Q4

REPORT INFORMATION
  Report Type: 
  Country: None (occurrence: None)
  Receive Date: 20081221
  Receipt Date: 20081221
  Transmission Date: 20090506
  Serious: Yes (Death, Hospitalization)
  Sender: FDA-Public Use
  Company Number: None

PATIENT
  Age: 76 Year
  Sex: Female
  Weight: 126.1 kg

DRUGS (1)
  1. CIPRO [Suspect]
     Indication: GANGRENE
     Dates: start: 20081125, end: 20081226

REACTIONS (2)
  - REFUSAL OF TREATMENT BY RELATIVE [None]
  - SKIN DISCOLOURATION [None]
